FAERS Safety Report 6284820-7 (Version None)
Quarter: 2009Q3

REPORT INFORMATION
  Report Type: 
  Country: None (occurrence: None)
  Receive Date: 20090727
  Receipt Date: 20090720
  Transmission Date: 20100115
  Serious: Yes (Other)
  Sender: FDA-Public Use
  Company Number: US-AVENTIS-200913282US

PATIENT
  Sex: Female
  Weight: 74.8 kg

DRUGS (11)
  1. LANTUS [Suspect]
     Indication: DIABETES MELLITUS
     Route: 058
     Dates: start: 20030101
  2. OPTICLIK (INSULIN INJECTION PEN) [Suspect]
     Indication: DIABETES MELLITUS
     Dates: start: 20060101
  3. ASPIRIN [Concomitant]
     Dosage: DOSE QUANTITY: 2
  4. AMLODIPINE [Concomitant]
     Dosage: DOSE QUANTITY: 1
  5. CITRUCEL [Concomitant]
     Dosage: DOSE QUANTITY: 1
  6. DRUGS FOR FUNCTIONAL GASTROINTEST. DISORDERS [Concomitant]
     Dosage: DOSE QUANTITY: 2
  7. FISH OIL [Concomitant]
  8. LISINOPRIL [Concomitant]
  9. OCUVITE                            /01053801/ [Concomitant]
     Dosage: DOSE QUANTITY: 2
  10. ZOLPIDEM [Concomitant]
     Indication: INSOMNIA
  11. CEPHALOSPORINS AND RELATED SUBSTANCES [Concomitant]
     Dosage: DOSE: UNK
     Dates: start: 20090101

REACTIONS (2)
  - MACULAR DEGENERATION [None]
  - VISUAL ACUITY REDUCED [None]
